FAERS Safety Report 7480923-X (Version None)
Quarter: 2011Q2

REPORT INFORMATION
  Report Type: 
  Country: None (occurrence: None)
  Receive Date: 20110506
  Receipt Date: 20110425
  Transmission Date: 20111010
  Serious: Yes (Hospitalization)
  Sender: FDA-Public Use
  Company Number: 031527

PATIENT
  Sex: Male

DRUGS (2)
  1. KEPPRA [Suspect]
     Dosage: 500 MG QD, ORAL
     Route: 048
     Dates: start: 20101122, end: 20101123
  2. KEPPRA [Suspect]
     Dosage: 500 MG QD, ORAL
     Route: 048
     Dates: start: 20101109, end: 20101121

REACTIONS (3)
  - DYSTONIA [None]
  - ATHETOSIS [None]
  - INFECTION [None]
